FAERS Safety Report 26114996 (Version 1)
Quarter: 2025Q4

REPORT INFORMATION
  Report Type: Report from Study
  Country: US (occurrence: None)
  Receive Date: 20251203
  Receipt Date: 20251203
  Transmission Date: 20260118
  Serious: Yes (Other)
  Sender: APOTEX
  Company Number: US-APOTEX-2025AP033184

PATIENT
  Age: 54 Year
  Sex: Female

DRUGS (1)
  1. MELPHALAN [Suspect]
     Active Substance: MELPHALAN
     Indication: Langerhans^ cell histiocytosis
     Dosage: 30 MILLIGRAM, 2 CYCLES

REACTIONS (4)
  - Post procedural stroke [Unknown]
  - Ophthalmoplegia [Unknown]
  - Condition aggravated [Unknown]
  - Hypoperfusion [Unknown]
